FAERS Safety Report 20475543 (Version 3)
Quarter: 2022Q2

REPORT INFORMATION
  Report Type: Report from Study
  Country: US (occurrence: US)
  Receive Date: 20220215
  Receipt Date: 20220411
  Transmission Date: 20220720
  Serious: Yes (Other)
  Sender: FDA-Public Use
  Company Number: US-NOVARTISPH-NVSC2022US033605

PATIENT
  Sex: Female

DRUGS (2)
  1. LUTATHERA [Suspect]
     Active Substance: LUTETIUM OXODOTREOTIDE LU-177
     Indication: Renal disorder
     Dosage: UNK
     Route: 042
     Dates: start: 20210914, end: 20210914
  2. LUTATHERA [Suspect]
     Active Substance: LUTETIUM OXODOTREOTIDE LU-177
     Dosage: UNK
     Route: 042

REACTIONS (4)
  - General physical health deterioration [Not Recovered/Not Resolved]
  - Renal disorder [Unknown]
  - Malaise [Unknown]
  - Product use in unapproved indication [Unknown]
